FAERS Safety Report 5764282-6 (Version None)
Quarter: 2008Q2

REPORT INFORMATION
  Report Type: 
  Country: None (occurrence: None)
  Receive Date: 20080604
  Receipt Date: 20080521
  Transmission Date: 20081010
  Serious: Yes (Hospitalization)
  Sender: FDA-Public Use
  Company Number: 2008US000008

PATIENT
  Age: 58 Year
  Sex: Female
  Weight: 93 kg

DRUGS (4)
  1. AMEVIVE [Suspect]
     Indication: PSORIASIS
     Dosage: 15 MG, WEEKLY, INTRAMUSCULAR
     Route: 030
     Dates: start: 20061218, end: 20070404
  2. PREMPRO [Concomitant]
  3. CHONDROITIN W/GLUCOSAMINE (GLUCOSAMINE, CHONDROITIN) [Concomitant]
  4. CALCIUM COMPOUNDS [Concomitant]

REACTIONS (1)
  - DIVERTICULITIS [None]
